FAERS Safety Report 24106692 (Version 3)
Quarter: 2025Q3

REPORT INFORMATION
  Report Type: Spontaneous
  Country: CA (occurrence: CA)
  Receive Date: 20240717
  Receipt Date: 20250809
  Transmission Date: 20251021
  Serious: Yes (Other)
  Sender: ALEXION PHARMACEUTICALS
  Company Number: 2020SE02592

PATIENT
  Age: 66 Year
  Sex: Female

DRUGS (11)
  1. SYMBICORT [Suspect]
     Active Substance: BUDESONIDE\FORMOTEROL FUMARATE DIHYDRATE
     Indication: Asthma
  2. ORENCIA [Suspect]
     Active Substance: ABATACEPT
     Indication: Rheumatoid arthritis
     Dosage: 500 MILLIGRAM, UNK, FREQUENCY: Q4WK
     Dates: start: 20170918
  3. ORENCIA [Suspect]
     Active Substance: ABATACEPT
  4. ORENCIA [Suspect]
     Active Substance: ABATACEPT
  5. Calcium osteo [Concomitant]
     Indication: Product used for unknown indication
     Route: 065
  6. CELEBREX [Concomitant]
     Active Substance: CELECOXIB
     Indication: Product used for unknown indication
     Route: 065
  7. ERGOCALCIFEROL [Concomitant]
     Active Substance: ERGOCALCIFEROL
     Indication: Product used for unknown indication
     Route: 065
  8. HYDROXYCHLOROQUINE SULFATE [Concomitant]
     Active Substance: HYDROXYCHLOROQUINE SULFATE
     Indication: Product used for unknown indication
     Route: 065
  9. NEXIUM [Concomitant]
     Active Substance: ESOMEPRAZOLE MAGNESIUM
     Indication: Product used for unknown indication
     Route: 065
  10. ROSUVASTATIN CALCIUM [Concomitant]
     Active Substance: ROSUVASTATIN CALCIUM
     Indication: Product used for unknown indication
     Route: 065
  11. SYNTHROID [Concomitant]
     Active Substance: LEVOTHYROXINE SODIUM
     Indication: Product used for unknown indication
     Route: 065

REACTIONS (26)
  - Abdominal pain upper [Recovered/Resolved]
  - Abscess oral [Unknown]
  - Asthenia [Not Recovered/Not Resolved]
  - Bronchitis [Recovering/Resolving]
  - Fatigue [Recovering/Resolving]
  - Frequent bowel movements [Recovered/Resolved]
  - Gastroenteritis viral [Not Recovered/Not Resolved]
  - Gastrointestinal pain [Not Recovered/Not Resolved]
  - Ligament sprain [Recovering/Resolving]
  - Malaise [Unknown]
  - Mouth ulceration [Recovering/Resolving]
  - Nasal congestion [Recovered/Resolved]
  - Nasopharyngitis [Recovered/Resolved]
  - Pneumonia [Not Recovered/Not Resolved]
  - Pollakiuria [Unknown]
  - Pulpitis dental [Recovering/Resolving]
  - Pyrexia [Recovered/Resolved]
  - Rhinorrhoea [Recovered/Resolved]
  - Tooth disorder [Not Recovered/Not Resolved]
  - Tooth fracture [Unknown]
  - Tooth infection [Recovering/Resolving]
  - Urinary tract infection [Unknown]
  - Cough [Not Recovered/Not Resolved]
  - Dizziness [Recovered/Resolved]
  - Fungal infection [Recovering/Resolving]
  - Throat irritation [Not Recovered/Not Resolved]

NARRATIVE: CASE EVENT DATE: 20180201
